FAERS Safety Report 23861967 (Version 3)
Quarter: 2024Q4

REPORT INFORMATION
  Report Type: Spontaneous
  Country: JP (occurrence: JP)
  Receive Date: 20240516
  Receipt Date: 20241105
  Transmission Date: 20250115
  Serious: Yes (Hospitalization, Other)
  Sender: ABBVIE
  Company Number: JP-JNJFOC-20230119401

PATIENT
  Age: 51 Year
  Sex: Male

DRUGS (3)
  1. IMBRUVICA [Suspect]
     Active Substance: IBRUTINIB
     Indication: Mantle cell lymphoma recurrent
     Dosage: AFTER BREAKFAST
     Route: 048
     Dates: start: 2021
  2. IMBRUVICA [Suspect]
     Active Substance: IBRUTINIB
     Indication: Mantle cell lymphoma recurrent
     Dosage: IBRUTINIB:140MG
     Route: 048
  3. IMBRUVICA [Suspect]
     Active Substance: IBRUTINIB
     Indication: Mantle cell lymphoma recurrent
     Dosage: AFTER BREAKFAST
     Route: 048

REACTIONS (26)
  - Tumour lysis syndrome [Unknown]
  - Platelet count decreased [Unknown]
  - Anaemia [Unknown]
  - Mantle cell lymphoma recurrent [Unknown]
  - Drug ineffective [Unknown]
  - Monocyte count increased [Unknown]
  - Blood uric acid increased [Unknown]
  - Therapeutic response unexpected [Unknown]
  - Anxiety [Unknown]
  - Feeling hot [Unknown]
  - Photophobia [Unknown]
  - White blood cell count increased [Unknown]
  - Muscular weakness [Unknown]
  - Contusion [Unknown]
  - Constipation [Unknown]
  - Epistaxis [Unknown]
  - Fluid retention [Unknown]
  - Pyrexia [Unknown]
  - Haemorrhoids [Unknown]
  - Urinary incontinence [Unknown]
  - Subcutaneous haematoma [Unknown]
  - Oedema peripheral [Unknown]
  - Red blood cell count decreased [Unknown]
  - Cough [Unknown]
  - Blood albumin decreased [Unknown]
  - Dyspnoea [Unknown]

NARRATIVE: CASE EVENT DATE: 20210301
